FAERS Safety Report 15998307 (Version 1)
Quarter: 2019Q1

REPORT INFORMATION
  Report Type: Spontaneous
  Country: US (occurrence: US)
  Receive Date: 20190223
  Receipt Date: 20190223
  Transmission Date: 20190418
  Serious: Yes (Other)
  Sender: FDA-Public Use
  Company Number: US-CIPLA LTD.-2019US01138

PATIENT

DRUGS (5)
  1. LEDIPASVIR W/SOFOSBUVIR [Interacting]
     Active Substance: LEDIPASVIR\SOFOSBUVIR
     Indication: CHRONIC HEPATITIS C
     Dosage: UNK
     Route: 065
  2. WARFARIN [Suspect]
     Active Substance: WARFARIN
     Indication: ANTICOAGULANT THERAPY
     Dosage: UNK
     Route: 065
  3. WARFARIN [Interacting]
     Active Substance: WARFARIN
     Dosage: 55 MILLIGRAM PER WEEK
     Route: 065
  4. RIBAVIRIN. [Interacting]
     Active Substance: RIBAVIRIN
     Indication: CHRONIC HEPATITIS C
     Dosage: 600 MILLIGRAM, BID
     Route: 065
  5. WARFARIN [Interacting]
     Active Substance: WARFARIN
     Dosage: 75 MILLIGRAM PER WEEK
     Route: 065

REACTIONS (4)
  - Drug interaction [Unknown]
  - Anticoagulation drug level below therapeutic [Unknown]
  - Accidental overdose [Unknown]
  - Anticoagulation drug level above therapeutic [Unknown]
